FAERS Safety Report 5492523-1 (Version None)
Quarter: 2007Q4

REPORT INFORMATION
  Report Type: 
  Country: None (occurrence: None)
  Receive Date: 20071022
  Receipt Date: 20071019
  Transmission Date: 20080405
  Serious: Yes (Hospitalization, Other)
  Sender: FDA-Public Use
  Company Number: US-SHR-US-2007-010208

PATIENT
  Age: 32 Year
  Sex: Female
  Weight: 63.5 kg

DRUGS (1)
  1. YASMIN [Suspect]
     Indication: ORAL CONTRACEPTION
     Dosage: 1 TAB(S), 1X/DAY
     Route: 048
     Dates: start: 20060101, end: 20070201

REACTIONS (7)
  - ABORTION SPONTANEOUS [None]
  - ANXIETY [None]
  - CHEST DISCOMFORT [None]
  - DYSPNOEA [None]
  - PALPITATIONS [None]
  - PANIC ATTACK [None]
  - PREGNANCY ON ORAL CONTRACEPTIVE [None]
